FAERS Safety Report 12137515 (Version 3)
Quarter: 2016Q2

REPORT INFORMATION
  Report Type: Spontaneous
  Country: JP (occurrence: JP)
  Receive Date: 20160302
  Receipt Date: 20160405
  Transmission Date: 20160815
  Serious: Yes (Other)
  Sender: FDA-Public Use
  Company Number: JP-JNJFOC-20160220824

PATIENT

DRUGS (1)
  1. ITRIZOLE [Suspect]
     Active Substance: ITRACONAZOLE
     Indication: DERMATOPHYTOSIS OF NAIL
     Route: 048

REACTIONS (4)
  - Electrocardiogram QT prolonged [Unknown]
  - Therapeutic response decreased [Unknown]
  - Blood disorder [Unknown]
  - Liver disorder [Unknown]
